FAERS Safety Report 14015900 (Version 1)
Quarter: 2017Q3

REPORT INFORMATION
  Report Type: Spontaneous
  Country: CH (occurrence: CH)
  Receive Date: 20170927
  Receipt Date: 20170927
  Transmission Date: 20171128
  Serious: Yes (Other)
  Sender: FDA-Public Use
  Company Number: CH-AMGEN-CHESP2017142847

PATIENT
  Age: 56 Year
  Sex: Female

DRUGS (8)
  1. FORTECORTIN [Concomitant]
     Active Substance: DEXAMETHASONE
     Dosage: 40 MG, DAY 1, DAY 8, DAY15
     Dates: start: 201510
  2. FORTECORTIN [Concomitant]
     Active Substance: DEXAMETHASONE
     Dosage: 40 MG, } 20 MG DAY 1, DAY 8, DAY15
     Dates: start: 201701
  3. THALIDOMIDE [Concomitant]
     Active Substance: THALIDOMIDE
     Dosage: 100 MG, UNK
     Dates: start: 200806
  4. XGEVA [Suspect]
     Active Substance: DENOSUMAB
     Indication: PLASMA CELL MYELOMA
     Dosage: 120 MG, EVERY 28 DAYS
     Route: 065
     Dates: start: 200806
  5. KYPROLIS [Suspect]
     Active Substance: CARFILZOMIB
     Indication: PLASMA CELL MYELOMA
     Dosage: 59 MG, DAY 1, DAY 2, DAY 8, DAY 9, DAYL5, DAY 16.
     Route: 065
     Dates: start: 201510
  6. THALIDOMIDE [Concomitant]
     Active Substance: THALIDOMIDE
     Dosage: UNK MG, UNK
     Dates: start: 200808
  7. KYPROLIS [Suspect]
     Active Substance: CARFILZOMIB
     Indication: PLASMA CELL MYELOMA
     Dosage: 120 MG, DAY 1, DAY 2, DAY 8, DAY 9, DAY 15, DAY 16.
     Route: 065
     Dates: start: 201701
  8. VELCADE [Concomitant]
     Active Substance: BORTEZOMIB
     Dosage: 2.5 MG, }2MG DAY 1, DAY 4, DAY 8, DAY 11
     Dates: start: 200806

REACTIONS (17)
  - Depression [Unknown]
  - Unevaluable event [Unknown]
  - Asthenia [Unknown]
  - Urinary tract infection [Unknown]
  - Hypertension [Unknown]
  - Plasma cell myeloma [Unknown]
  - Eating disorder [Unknown]
  - Pruritus [Unknown]
  - Hot flush [Unknown]
  - Cough [Unknown]
  - Eczema [Unknown]
  - Fatigue [Unknown]
  - Rash [Unknown]
  - Pyrexia [Unknown]
  - Polyneuropathy [Unknown]
  - Nausea [Unknown]
  - Musculoskeletal pain [Unknown]

NARRATIVE: CASE EVENT DATE: 201603
